FAERS Safety Report 16233630 (Version 1)
Quarter: 2019Q2

REPORT INFORMATION
  Report Type: Spontaneous
  Country: CN (occurrence: CN)
  Receive Date: 20190424
  Receipt Date: 20190424
  Transmission Date: 20190711
  Serious: Yes (Other)
  Sender: FDA-Public Use
  Company Number: CN-JNJFOC-20190424949

PATIENT
  Age: 95 Year
  Sex: Male
  Weight: 59 kg

DRUGS (3)
  1. FUROSEMIDE. [Suspect]
     Active Substance: FUROSEMIDE
     Indication: PROPHYLAXIS
     Route: 048
     Dates: start: 20190405
  2. RISPERDAL [Suspect]
     Active Substance: RISPERIDONE
     Indication: PROPHYLAXIS
     Route: 065
     Dates: start: 20190402, end: 20190404
  3. FUROSEMIDE. [Suspect]
     Active Substance: FUROSEMIDE
     Indication: PROPHYLAXIS
     Route: 048
     Dates: start: 20190329, end: 20190404

REACTIONS (5)
  - Dementia [Unknown]
  - Hypotension [Recovering/Resolving]
  - Off label use [Unknown]
  - Somnolence [Recovering/Resolving]
  - Incorrect route of product administration [Unknown]

NARRATIVE: CASE EVENT DATE: 20190402
